FAERS Safety Report 20637373 (Version 3)
Quarter: 2022Q2

REPORT INFORMATION
  Report Type: Report from Study
  Country: FR (occurrence: FR)
  Receive Date: 20220325
  Receipt Date: 20220411
  Transmission Date: 20220721
  Serious: Yes (Death, Hospitalization)
  Sender: FDA-Public Use
  Company Number: FR-ABBVIE-22K-056-4329554-00

PATIENT
  Age: 62 Year
  Sex: Male
  Weight: 88 kg

DRUGS (6)
  1. UPADACITINIB [Suspect]
     Active Substance: UPADACITINIB
     Indication: Rheumatoid arthritis
     Route: 048
     Dates: start: 20220202, end: 20220315
  2. ENALAPRIL MALEATE LERCANIDIPINE HYDROCHLORIDE [Concomitant]
     Indication: Hypertension
     Route: 048
     Dates: start: 2019
  3. CORTISONE [Concomitant]
     Active Substance: CORTISONE
     Indication: Rheumatoid arthritis
     Route: 048
     Dates: start: 20211215
  4. CORTISONE [Concomitant]
     Active Substance: CORTISONE
     Route: 048
     Dates: start: 202005, end: 202201
  5. KETOPROFEN [Concomitant]
     Active Substance: KETOPROFEN
     Indication: Rheumatoid arthritis
     Route: 048
     Dates: start: 20220113
  6. KETOPROFEN [Concomitant]
     Active Substance: KETOPROFEN
     Dates: start: 20220201

REACTIONS (1)
  - Gastrointestinal haemorrhage [Fatal]

NARRATIVE: CASE EVENT DATE: 20220313
